FAERS Safety Report 8999867 (Version 1)
Quarter: 2013Q1

REPORT INFORMATION
  Report Type: Spontaneous
  Country: CA (occurrence: CA)
  Receive Date: 20130102
  Receipt Date: 20130102
  Transmission Date: 20140127
  Serious: Yes (Other)
  Sender: FDA-Public Use
  Company Number: CA-JNJFOC-20121213076

PATIENT
  Sex: Female

DRUGS (2)
  1. REMICADE [Suspect]
     Indication: CROHN^S DISEASE
     Dosage: USED INFLIXIMAB FOR 1 YEAR
     Route: 042
  2. METHOTREXATE [Concomitant]
     Route: 065

REACTIONS (1)
  - Acute psychosis [Unknown]
